FAERS Safety Report 6478458-6 (Version None)
Quarter: 2009Q4

REPORT INFORMATION
  Report Type: 
  Country: None (occurrence: None)
  Receive Date: 20091202
  Receipt Date: 20091118
  Transmission Date: 20100525
  Serious: Yes (Hospitalization)
  Sender: FDA-Public Use
  Company Number: 001387

PATIENT
  Sex: Female

DRUGS (1)
  1. NEUPRO [Suspect]

REACTIONS (1)
  - BLISTER [None]
